FAERS Safety Report 4635897-3 (Version None)
Quarter: 2005Q2

REPORT INFORMATION
  Report Type: 
  Country: None (occurrence: None)
  Receive Date: 20050415
  Receipt Date: 20050324
  Transmission Date: 20051028
  Serious: Yes (Life-Threatening, Hospitalization, Disabling)
  Sender: FDA-Public Use
  Company Number: AU-BRISTOL-MYERS SQUIBB COMPANY-12911632

PATIENT
  Age: 87 Year
  Sex: Male
  Weight: 106 kg

DRUGS (7)
  1. IRBESARTAN [Suspect]
     Indication: HYPERTENSION
     Dates: start: 20040525, end: 20050302
  2. BLINDED: PLACEBO [Suspect]
     Indication: HYPERTENSION
     Dates: start: 20040525, end: 20050302
  3. CLOPIDOGREL BISULFATE [Suspect]
     Indication: PROPHYLAXIS
     Dates: start: 20040527, end: 20050302
  4. ASPIRIN [Suspect]
     Indication: PROPHYLAXIS
     Dates: start: 20040527, end: 20050302
  5. NATRILIX [Concomitant]
  6. EFFEXOR [Concomitant]
  7. AMIODARONE [Concomitant]

REACTIONS (3)
  - ORTHOSTATIC HYPOTENSION [None]
  - SUBDURAL HAEMATOMA [None]
  - SYNCOPE [None]
